FAERS Safety Report 8030228-3 (Version None)
Quarter: 2012Q1

REPORT INFORMATION
  Report Type: 
  Country: None (occurrence: None)
  Receive Date: 20120109
  Receipt Date: 20120104
  Transmission Date: 20120608
  Serious: Yes (Other)
  Sender: FDA-Public Use
  Company Number: PHFR2010GB04244

PATIENT
  Sex: Female

DRUGS (2)
  1. CLOZARIL [Suspect]
     Indication: SCHIZOPHRENIA
     Dosage: UNK
     Route: 048
     Dates: start: 19990713, end: 20111230
  2. CLOZARIL [Suspect]
     Route: 048

REACTIONS (4)
  - WHITE BLOOD CELL COUNT INCREASED [None]
  - NEUTROPHIL COUNT DECREASED [None]
  - BREAST CANCER [None]
  - LYMPHOMA [None]
